FAERS Safety Report 12518367 (Version 1)
Quarter: 2016Q2

REPORT INFORMATION
  Report Type: Spontaneous
  Country: FR (occurrence: FR)
  Receive Date: 20160630
  Receipt Date: 20160630
  Transmission Date: 20160815
  Serious: Yes (Life-Threatening, Hospitalization)
  Sender: FDA-Public Use
  Company Number: FR-BEH-2016070676

PATIENT
  Age: 70 Year
  Sex: Female

DRUGS (4)
  1. MYTELASE [Concomitant]
     Active Substance: AMBENONIUM CHLORIDE
  2. GUTRON [Concomitant]
     Active Substance: MIDODRINE
  3. PRIVIGEN [Suspect]
     Active Substance: HUMAN IMMUNOGLOBULIN G
     Dosage: 5 G, OD
     Route: 042
     Dates: start: 20160526, end: 20160530
  4. PRIVIGEN [Suspect]
     Active Substance: HUMAN IMMUNOGLOBULIN G
     Indication: MUSCULAR WEAKNESS
     Dosage: 20 G, OD
     Route: 042
     Dates: start: 20160526, end: 20160530

REACTIONS (4)
  - Hot flush [Recovered/Resolved]
  - Dysphagia [Recovered/Resolved]
  - Eyelid ptosis [Recovered/Resolved]
  - Quadriparesis [Recovered/Resolved]

NARRATIVE: CASE EVENT DATE: 20160530
